FAERS Safety Report 18977937 (Version 1)
Quarter: 2021Q1

REPORT INFORMATION
  Report Type: Spontaneous
  Country: FR (occurrence: FR)
  Receive Date: 20210307
  Receipt Date: 20210307
  Transmission Date: 20210420
  Serious: Yes (Life-Threatening)
  Sender: FDA-Public Use
  Company Number: FR-TEVA-2021-FR-1886562

PATIENT
  Age: 66 Year
  Sex: Female
  Weight: 82 kg

DRUGS (12)
  1. COVERAM [Suspect]
     Active Substance: AMLODIPINE\PERINDOPRIL
     Indication: HYPERTENSION
     Dosage: 1DOSAGEFORM
     Route: 048
     Dates: start: 2020, end: 20210131
  2. EUCREAS 50 MG/1000 MG, COMPRIME PELLICULE [Suspect]
     Active Substance: METFORMIN HYDROCHLORIDE\VILDAGLIPTIN
     Indication: DIABETES MELLITUS MANAGEMENT
     Dosage: 1DOSAGEFORM
     Route: 048
     Dates: start: 2020, end: 20210131
  3. PANTOPRAZOLE [Concomitant]
     Active Substance: PANTOPRAZOLE
  4. ZOPICLONE [Suspect]
     Active Substance: ZOPICLONE
     Indication: HYPNOTHERAPY
     Dosage: 7.5MILLIGRAM
     Route: 048
     Dates: start: 2020, end: 20210131
  5. PRAVASTATINE SODIQUE [Suspect]
     Active Substance: PRAVASTATIN SODIUM
     Indication: HYPERCHOLESTEROLAEMIA
     Dosage: 20MILLLIGRAM
     Route: 048
     Dates: start: 2020, end: 20210131
  6. REPAGLINIDE. [Suspect]
     Active Substance: REPAGLINIDE
     Indication: DIABETES MELLITUS MANAGEMENT
     Dosage: 2MILLIGRAM
     Route: 048
     Dates: start: 2020, end: 20210131
  7. DICLOFENAC MYLAN LP 75 MG, COMPRIME ENROBE A LIBERATION PROLONGEE [Suspect]
     Active Substance: DICLOFENAC SODIUM
     Indication: ANTIINFLAMMATORY THERAPY
     Dosage: WITH PROLONGED RELEASE:1DOSAGEFORM
     Route: 048
     Dates: start: 20210129, end: 20210129
  8. KARDEGIC [Suspect]
     Active Substance: ASPIRIN DL-LYSINE
     Indication: ANTIPLATELET THERAPY
     Dosage: 75MILLIGRAM :SACHET?DOSE
     Route: 048
     Dates: start: 2020, end: 20210131
  9. DAFALGAN [Suspect]
     Active Substance: ACETAMINOPHEN
     Indication: ANALGESIC THERAPY
     Dosage: 1GRAM
     Route: 048
     Dates: start: 2020, end: 20210131
  10. RILMENIDINE [Suspect]
     Active Substance: RILMENIDINE
     Indication: HYPERTENSION
     Dosage: 1MILLIGRAM
     Route: 048
     Dates: start: 2020, end: 20210131
  11. MOVICOL [Suspect]
     Active Substance: POLYETHYLENE GLYCOL 3350\POTASSIUM CHLORIDE\SODIUM BICARBONATE\SODIUM CHLORIDE
     Indication: LAXATIVE SUPPORTIVE CARE
     Dosage: 20MILLIGRAM
     Route: 048
     Dates: start: 2020, end: 20210131
  12. TENORETIC [Suspect]
     Active Substance: ATENOLOL\CHLORTHALIDONE
     Indication: HYPERTENSION
     Dosage: 1DOSAGEFORM
     Route: 048
     Dates: start: 2020, end: 20210131

REACTIONS (3)
  - Acute kidney injury [Recovered/Resolved]
  - Diarrhoea [Recovered/Resolved]
  - Lactic acidosis [Recovered/Resolved]

NARRATIVE: CASE EVENT DATE: 20210130
